FAERS Safety Report 4532079-0 (Version None)
Quarter: 2004Q4

REPORT INFORMATION
  Report Type: 
  Country: None (occurrence: None)
  Receive Date: 20041220
  Receipt Date: 20041115
  Transmission Date: 20050328
  Serious: Yes (Hospitalization, Other)
  Sender: FDA-Public Use
  Company Number: US-BRISTOL-MYERS SQUIBB COMPANY-12767240

PATIENT
  Age: 94 Year
  Sex: Female

DRUGS (1)
  1. MEGACE [Suspect]
     Indication: INCREASED APPETITE
     Route: 048
     Dates: end: 20041110

REACTIONS (4)
  - ANAEMIA [None]
  - COMA [None]
  - DEHYDRATION [None]
  - VAGINAL HAEMORRHAGE [None]
